FAERS Safety Report 16445899 (Version 3)
Quarter: 2019Q2

REPORT INFORMATION
  Report Type: Report from Study
  Country: None (occurrence: DE)
  Receive Date: 20190618
  Receipt Date: 20190620
  Transmission Date: 20190711
  Serious: Yes (Death, Hospitalization)
  Sender: FDA-Public Use
  Company Number: DE-ABBVIE-19S-062-2823809-00

PATIENT
  Age: 84 Year
  Sex: Male

DRUGS (1)
  1. DUODOPA [Suspect]
     Active Substance: CARBIDOPA\LEVODOPA
     Indication: PARKINSON^S DISEASE
     Dosage: MD 3 ML, CRD 3 ML/H, CRN 3 ML/H, ED 1 ML
     Route: 050
     Dates: start: 20190603

REACTIONS (2)
  - Pneumonia [Fatal]
  - Faecal vomiting [Not Recovered/Not Resolved]

NARRATIVE: CASE EVENT DATE: 20190615
